FAERS Safety Report 13098371 (Version 1)
Quarter: 2017Q1

REPORT INFORMATION
  Report Type: Spontaneous
  Country: US (occurrence: US)
  Receive Date: 20170109
  Receipt Date: 20170109
  Transmission Date: 20170428
  Serious: Yes (Other)
  Sender: FDA-Public Use
  Company Number: US-ELI_LILLY_AND_COMPANY-US201607008622

PATIENT
  Sex: Female
  Weight: 79 kg

DRUGS (3)
  1. CYMBALTA [Suspect]
     Active Substance: DULOXETINE HYDROCHLORIDE
     Dosage: 90 MG, QD
     Route: 048
     Dates: start: 200704
  2. CYMBALTA [Suspect]
     Active Substance: DULOXETINE HYDROCHLORIDE
     Indication: ANXIETY
     Dosage: 60 MG, QD
     Route: 048
     Dates: start: 20070301
  3. CYMBALTA [Suspect]
     Active Substance: DULOXETINE HYDROCHLORIDE
     Indication: DEPRESSION
     Dosage: 30 MG, DAILY FOR ONE WEEK
     Route: 065
     Dates: start: 20070222

REACTIONS (20)
  - Tremor [Unknown]
  - Insomnia [Unknown]
  - Dysphemia [Recovered/Resolved]
  - Agitation [Unknown]
  - Paraesthesia [Recovered/Resolved]
  - Tinnitus [Unknown]
  - Dysphoria [Unknown]
  - Headache [Unknown]
  - Suicidal ideation [Unknown]
  - Sensory disturbance [Unknown]
  - Muscle spasms [Unknown]
  - Lethargy [Unknown]
  - Drug withdrawal syndrome [Unknown]
  - Fatigue [Unknown]
  - Irritability [Unknown]
  - Dizziness [Unknown]
  - Back pain [Unknown]
  - Affect lability [Unknown]
  - Muscle twitching [Unknown]
  - Anxiety [Unknown]
